FAERS Safety Report 12439428 (Version 2)
Quarter: 2016Q2

REPORT INFORMATION
  Report Type: Spontaneous
  Country: US (occurrence: US)
  Receive Date: 20160606
  Receipt Date: 20160608
  Transmission Date: 20160815
  Serious: Yes (Other)
  Sender: FDA-Public Use
  Company Number: US-BAYER-2016-108267

PATIENT
  Sex: Female

DRUGS (2)
  1. MIRENA [Suspect]
     Active Substance: LEVONORGESTREL
     Indication: CONTRACEPTION
     Dosage: 20 MCG/24HR, CONT
     Route: 015
     Dates: start: 201402
  2. MIRENA [Suspect]
     Active Substance: LEVONORGESTREL
     Indication: GENITAL HAEMORRHAGE

REACTIONS (10)
  - Weight increased [None]
  - Loss of libido [None]
  - Abdominal pain lower [None]
  - Pain [None]
  - Uterine perforation [None]
  - Migraine [None]
  - Hypertension [None]
  - Headache [None]
  - Menorrhagia [Recovered/Resolved]
  - Device difficult to use [None]
